FAERS Safety Report 12207652 (Version 1)
Quarter: 2016Q1

REPORT INFORMATION
  Report Type: Spontaneous
  Country: US (occurrence: US)
  Receive Date: 20160324
  Receipt Date: 20160324
  Transmission Date: 20160526
  Serious: Yes (Other)
  Sender: FDA-Public Use
  Company Number: US-MDT-ADR-2016-00233

PATIENT
  Age: 71 Year
  Sex: Female

DRUGS (15)
  1. ATORVASTATIN [Suspect]
     Active Substance: ATORVASTATIN
     Dosage: 40MG TABLET BY MOUTH DAILY AT BEDTIME
     Route: 048
  2. OXYBUTYNIN CHLORIDE. [Suspect]
     Active Substance: OXYBUTYNIN CHLORIDE
     Dosage: 5MG TABLET 1 TABLET BY MOUTH DAILY
     Route: 048
  3. LIORESAL [Suspect]
     Active Substance: BACLOFEN
     Dosage: 150MCG/DAY
     Route: 037
  4. VESICARE [Suspect]
     Active Substance: SOLIFENACIN SUCCINATE
     Dosage: 10MG TABLET 0.5 TABLET BY MOUTH DAILY
     Route: 048
  5. ASPIRIN. [Suspect]
     Active Substance: ASPIRIN
     Dosage: TAKE 1 TABLET BY MOUTH EVERY MORNING
     Route: 048
  6. ZOLPIDEM [Suspect]
     Active Substance: ZOLPIDEM\ZOLPIDEM TARTRATE
     Dosage: 10MG TABLET, TAKE 1 TABLET BY MOUTH AT BEDTIME
     Route: 048
  7. BACLOFEN. [Suspect]
     Active Substance: BACLOFEN
     Dosage: 10MG TABLET TAKE 1-2 TABLETS BY MOUTH THREE TIMES DAILY AS
  8. ACETAMINOPHEN. [Suspect]
     Active Substance: ACETAMINOPHEN
     Indication: PAIN MANAGEMENT
     Dosage: 1000MG ORALLY EVERY 8 HOURS
     Route: 048
  9. AMLODIPINE-BENAZEPRIL 1 0/40MG TABLET [Suspect]
     Active Substance: AMLODIPINE BESYLATE\BENAZEPRIL HYDROCHLORIDE
     Indication: BLOOD PRESSURE MEASUREMENT
     Dosage: TAKE 1 TABLET BY MOUTH ONCE DAILY
     Route: 048
  10. SENNOSIDES. [Suspect]
     Active Substance: SENNOSIDES
     Dosage: 1 TABLET ORALLY TWICE DAILY
     Route: 048
  11. DOCUSATE SODIUM. [Suspect]
     Active Substance: DOCUSATE SODIUM
     Dosage: 100MG ORALLY TWICE DAILY
     Route: 048
  12. FUROSEMIDE. [Suspect]
     Active Substance: FUROSEMIDE
     Dosage: 20MG TABLET BY MOUTH DAILY
     Route: 048
  13. POTASSIUM CHLORIDE. [Suspect]
     Active Substance: POTASSIUM CHLORIDE
     Dosage: 20MEQ BY MOUTH DAILY
     Route: 048
  14. BISACODYL. [Suspect]
     Active Substance: BISACODYL
     Dosage: 10MG RECTALLY DAILY
     Route: 054
  15. BACLOFEN. [Suspect]
     Active Substance: BACLOFEN
     Dosage: 1 TABLET BY MOUTH THREE TIMES DAILY
     Route: 048
     Dates: end: 20160201

REACTIONS (1)
  - No therapeutic response [Recovered/Resolved]
